FAERS Safety Report 5080566-1 (Version None)
Quarter: 2006Q3

REPORT INFORMATION
  Report Type: 
  Country: None (occurrence: None)
  Receive Date: 20060814
  Receipt Date: 20060814
  Transmission Date: 20061208
  Serious: Yes (Hospitalization)
  Sender: FDA-Public Use
  Company Number: None

PATIENT
  Age: 65 Year
  Sex: Female

DRUGS (3)
  1. TENECTEPLASE [Suspect]
     Dosage: SEE IMAGE
  2. ENOXAPARIN SODIUM [Suspect]
     Dosage: SEE IMAGE
  3. TIROFIBAN [Suspect]

REACTIONS (1)
  - GASTROINTESTINAL HAEMORRHAGE [None]
